FAERS Safety Report 4655235-X (Version None)
Quarter: 2005Q2

REPORT INFORMATION
  Report Type: 
  Country: None (occurrence: None)
  Receive Date: 20050506
  Receipt Date: 20050428
  Transmission Date: 20051028
  Serious: Yes (Other)
  Sender: FDA-Public Use
  Company Number: 2005-UK-00095

PATIENT
  Age: 18 Year
  Sex: Male

DRUGS (3)
  1. LITHIUM CARBONATE [Suspect]
     Indication: CLUSTER HEADACHE
     Route: 065
  2. UNIVER [Suspect]
     Indication: CLUSTER HEADACHE
     Route: 065
     Dates: start: 19990101
  3. MENINGOCOCCAL POLYSACCHARIDE VACCINE GROUP C [Suspect]
     Indication: PROPHYLAXIS
     Route: 065
     Dates: start: 20000201, end: 20000201

REACTIONS (2)
  - GINGIVAL OEDEMA [None]
  - SYNCOPE [None]
